FAERS Safety Report 10183636 (Version 1)
Quarter: 2014Q2

REPORT INFORMATION
  Report Type: Spontaneous
  Country: US (occurrence: None)
  Receive Date: 20140425
  Receipt Date: 20140425
  Transmission Date: 20141212
  Serious: No
  Sender: FDA-Public Use
  Company Number: AP356-00441-SPO-US

PATIENT
  Age: 38 Year
  Sex: Female
  Weight: 87 kg

DRUGS (1)
  1. BELVIQ (LORCASERIN HYDROCHLORIDE) [Suspect]
     Indication: WEIGHT CONTROL
     Dosage: 1 DOSE ONLY
     Route: 048
     Dates: start: 20140208, end: 20140208

REACTIONS (3)
  - Energy increased [None]
  - Nausea [None]
  - Headache [None]
